FAERS Safety Report 4662653-2 (Version None)
Quarter: 2005Q2

REPORT INFORMATION
  Report Type: 
  Country: None (occurrence: None)
  Receive Date: 20050506
  Receipt Date: 20050117
  Transmission Date: 20051028
  Serious: No
  Sender: FDA-Public Use
  Company Number: 2005UW00836

PATIENT
  Age: 63 Year
  Sex: Male
  Weight: 90.264 kg

DRUGS (8)
  1. NEXIUM [Suspect]
     Indication: GASTROOESOPHAGEAL REFLUX DISEASE
     Dosage: 40 MG PO
     Route: 048
     Dates: start: 20010101
  2. NEXIUM [Suspect]
     Indication: OESOPHAGEAL ULCER
     Dosage: 40 MG PO
     Route: 048
     Dates: start: 20010101
  3. LEVOTHYROXINE SODIUM [Concomitant]
  4. TOPAMAX [Concomitant]
  5. METOPROLOL [Concomitant]
  6. TIMOLOL MALEATE [Concomitant]
  7. SIMVASTATIN [Concomitant]
  8. GABAPENTIN [Concomitant]

REACTIONS (1)
  - PANCREATITIS [None]
